FAERS Safety Report 25502306 (Version 1)
Quarter: 2025Q3

REPORT INFORMATION
  Report Type: Report from Study
  Country: EU (occurrence: EU)
  Receive Date: 20250702
  Receipt Date: 20250702
  Transmission Date: 20251021
  Serious: Yes (Other)
  Sender: ROCHE
  Company Number: EU-ROCHE-10000324299

PATIENT
  Sex: Female

DRUGS (28)
  1. RITUXIMAB [Suspect]
     Active Substance: RITUXIMAB
     Indication: Migraine
     Route: 065
  2. OCRELIZUMAB [Suspect]
     Active Substance: OCRELIZUMAB
     Indication: Migraine
     Route: 065
  3. MYCOPHENOLATE MOFETIL [Suspect]
     Active Substance: MYCOPHENOLATE MOFETIL
     Indication: Migraine
     Route: 065
  4. TOCILIZUMAB [Suspect]
     Active Substance: TOCILIZUMAB
     Indication: Migraine
     Route: 065
  5. METHOTREXATE [Suspect]
     Active Substance: METHOTREXATE
     Indication: Migraine
     Route: 065
  6. AZATHIOPRINE [Suspect]
     Active Substance: AZATHIOPRINE
     Indication: Migraine
     Route: 065
  7. MERCAPTOPURINE [Suspect]
     Active Substance: MERCAPTOPURINE
     Indication: Migraine
     Route: 065
  8. TACROLIMUS [Suspect]
     Active Substance: TACROLIMUS
     Indication: Migraine
     Route: 065
  9. TOFACITINIB [Suspect]
     Active Substance: TOFACITINIB
     Indication: Migraine
     Route: 065
  10. OFATUMUMAB [Suspect]
     Active Substance: OFATUMUMAB
     Indication: Migraine
     Route: 065
  11. MEPOLIZUMAB [Suspect]
     Active Substance: MEPOLIZUMAB
     Indication: Migraine
     Route: 065
  12. RESLIZUMAB [Suspect]
     Active Substance: RESLIZUMAB
     Indication: Migraine
     Route: 065
  13. IXEKIZUMAB [Suspect]
     Active Substance: IXEKIZUMAB
     Indication: Migraine
     Route: 065
  14. USTEKINUMAB [Suspect]
     Active Substance: USTEKINUMAB
     Indication: Migraine
     Route: 065
  15. ADALIMUMAB [Suspect]
     Active Substance: ADALIMUMAB
     Indication: Migraine
     Route: 065
  16. ETANERCEPT [Suspect]
     Active Substance: ETANERCEPT
     Indication: Migraine
     Route: 065
  17. INFLIXIMAB [Suspect]
     Active Substance: INFLIXIMAB
     Indication: Migraine
     Route: 065
  18. GOLIMUMAB [Suspect]
     Active Substance: GOLIMUMAB
     Indication: Migraine
     Route: 065
  19. BELIMUMAB [Suspect]
     Active Substance: BELIMUMAB
     Indication: Migraine
     Route: 065
  20. ABATACEPT [Suspect]
     Active Substance: ABATACEPT
     Indication: Migraine
     Route: 065
  21. OMALIZUMAB [Suspect]
     Active Substance: OMALIZUMAB
     Indication: Migraine
     Route: 065
  22. CLADRIBINE [Suspect]
     Active Substance: CLADRIBINE
     Indication: Migraine
     Route: 065
  23. HYDROXYCHLOROQUINE [Suspect]
     Active Substance: HYDROXYCHLOROQUINE
     Indication: Migraine
     Route: 065
  24. MONTELUKAST [Suspect]
     Active Substance: MONTELUKAST
     Indication: Migraine
     Route: 065
  25. SIPONIMOD [Suspect]
     Active Substance: SIPONIMOD
     Indication: Migraine
     Route: 065
  26. DIMETHYL FUMARATE [Suspect]
     Active Substance: DIMETHYL FUMARATE
     Indication: Migraine
     Route: 065
  27. GLATIRAMER ACETATE [Suspect]
     Active Substance: GLATIRAMER ACETATE
     Indication: Migraine
     Route: 065
  28. LEFLUNOMIDE [Suspect]
     Active Substance: LEFLUNOMIDE
     Indication: Migraine
     Route: 065

REACTIONS (8)
  - Hypertension [Unknown]
  - Constipation [Unknown]
  - Dizziness [Unknown]
  - Injection site reaction [Unknown]
  - Fatigue [Unknown]
  - Headache [Unknown]
  - Pyrexia [Unknown]
  - Cerebrovascular accident [Unknown]
